FAERS Safety Report 10150102 (Version 2)
Quarter: 2014Q2

REPORT INFORMATION
  Report Type: Spontaneous
  Country: JP (occurrence: JP)
  Receive Date: 20140502
  Receipt Date: 20140529
  Transmission Date: 20141212
  Serious: Yes (Hospitalization)
  Sender: FDA-Public Use
  Company Number: JP-JNJFOC-20140420374

PATIENT
  Age: 63 Year
  Sex: Male
  Weight: 65 kg

DRUGS (5)
  1. XARELTO [Suspect]
     Indication: ATRIAL FIBRILLATION
     Route: 048
     Dates: start: 20130516
  2. XARELTO [Suspect]
     Indication: CEREBROVASCULAR ACCIDENT PROPHYLAXIS
     Route: 048
     Dates: start: 20130516
  3. MEXITIL [Concomitant]
     Indication: VENTRICULAR TACHYCARDIA
     Route: 048
  4. CYCLANDELATE [Concomitant]
     Indication: LIPIDS ABNORMAL
     Route: 048
  5. LIVALO [Concomitant]
     Indication: LIPIDS ABNORMAL
     Route: 048

REACTIONS (1)
  - Embolic stroke [Not Recovered/Not Resolved]
